FAERS Safety Report 13116316 (Version 1)
Quarter: 2017Q1

REPORT INFORMATION
  Report Type: Report from Study
  Country: US (occurrence: US)
  Receive Date: 20170116
  Receipt Date: 20170116
  Transmission Date: 20170428
  Serious: Yes (Other)
  Sender: FDA-Public Use
  Company Number: US-UCBSA-2017001439

PATIENT
  Sex: Female

DRUGS (1)
  1. LACOSAMIDE. [Suspect]
     Active Substance: LACOSAMIDE
     Indication: SEIZURE
     Dosage: UNK

REACTIONS (6)
  - Hypersensitivity [Unknown]
  - Attention deficit/hyperactivity disorder [Unknown]
  - Road traffic accident [Unknown]
  - Epilepsy [Unknown]
  - Craniocerebral injury [Unknown]
  - Post-traumatic stress disorder [Unknown]
